FAERS Safety Report 19636542 (Version 1)
Quarter: 2021Q3

REPORT INFORMATION
  Report Type: Spontaneous
  Country: DZ (occurrence: DZ)
  Receive Date: 20210730
  Receipt Date: 20210730
  Transmission Date: 20211014
  Serious: Yes (Death)
  Sender: FDA-Public Use
  Company Number: None

PATIENT
  Age: 67 Year
  Sex: Female
  Weight: 102.6 kg

DRUGS (22)
  1. EPINEPHRINE. [Concomitant]
     Active Substance: EPINEPHRINE
  2. DAPSONE. [Concomitant]
     Active Substance: DAPSONE
  3. IPRATROPIUM?ALBUTEROL [Concomitant]
     Active Substance: ALBUTEROL\IPRATROPIUM
  4. ROSUVASTATIN. [Concomitant]
     Active Substance: ROSUVASTATIN
  5. OMEPRAZOLE. [Concomitant]
     Active Substance: OMEPRAZOLE
  6. CEPHALEXIN. [Concomitant]
     Active Substance: CEPHALEXIN
  7. DULOXETINE. [Concomitant]
     Active Substance: DULOXETINE
  8. AMIODARONE [Concomitant]
     Active Substance: AMIODARONE
  9. GLIPIZIDE. [Concomitant]
     Active Substance: GLIPIZIDE
  10. LEVETIRACETAM. [Concomitant]
     Active Substance: LEVETIRACETAM
  11. FLUTICASONE. [Concomitant]
     Active Substance: FLUTICASONE
  12. DILTIAZEM. [Concomitant]
     Active Substance: DILTIAZEM
  13. ELIQUIS [Concomitant]
     Active Substance: APIXABAN
  14. LOPERAMIDE [Concomitant]
     Active Substance: LOPERAMIDE
  15. TEMOZOLOMIDE. [Suspect]
     Active Substance: TEMOZOLOMIDE
     Indication: BRAIN NEOPLASM MALIGNANT
     Route: 048
     Dates: start: 20210527, end: 20210720
  16. CEFTRIAXONE. [Concomitant]
     Active Substance: CEFTRIAXONE
  17. OXYCODONE [Concomitant]
     Active Substance: OXYCODONE
  18. ALBUTEROL HFA [Concomitant]
     Active Substance: ALBUTEROL SULFATE
  19. METFORMIN [Concomitant]
     Active Substance: METFORMIN HYDROCHLORIDE
  20. DEXAMETHASONE. [Concomitant]
     Active Substance: DEXAMETHASONE
  21. LISINOPRIL. [Concomitant]
     Active Substance: LISINOPRIL
  22. MIRTAZAPINE. [Concomitant]
     Active Substance: MIRTAZAPINE

REACTIONS (1)
  - Death [None]

NARRATIVE: CASE EVENT DATE: 20210720
